FAERS Safety Report 4884543-2 (Version None)
Quarter: 2005Q4

REPORT INFORMATION
  Report Type: 
  Country: None (occurrence: None)
  Receive Date: 20051201
  Receipt Date: 20050914
  Transmission Date: 20060501
  Serious: No
  Sender: FDA-Public Use
  Company Number: 2005PV002090

PATIENT
  Age: 60 Year
  Sex: Male

DRUGS (6)
  1. BYETTA [Suspect]
     Indication: DIABETES MELLITUS NON-INSULIN-DEPENDENT
     Dosage: 5 MCGY; BID; SC
     Route: 058
     Dates: start: 20050907
  2. METFORMIN HCL [Concomitant]
  3. AVANDIA [Concomitant]
  4. LIPITOR [Concomitant]
  5. DIOVAN [Concomitant]
  6. ACTZ [Concomitant]

REACTIONS (2)
  - BURNING SENSATION [None]
  - FLUSHING [None]
